FAERS Safety Report 5533298-7 (Version None)
Quarter: 2007Q4

REPORT INFORMATION
  Report Type: 
  Country: None (occurrence: None)
  Receive Date: 20071130
  Receipt Date: 20071130
  Transmission Date: 20080405
  Serious: Yes (Hospitalization)
  Sender: FDA-Public Use
  Company Number: None

PATIENT
  Sex: Female
  Weight: 65 kg

DRUGS (2)
  1. PHOSPHOSODA [Suspect]
     Indication: BOWEL PREPARATION
     Dosage: 1.5 OZ  Q12H   PO
     Route: 048
     Dates: start: 20071112, end: 20071113
  2. PHOSPHOSODA    -UNKNOWN- [Suspect]
     Indication: BOWEL PREPARATION
     Dosage: 1.5 OZ  Q12H   PO
     Route: 048
     Dates: start: 20071126, end: 20071127

REACTIONS (4)
  - BLOOD CREATININE INCREASED [None]
  - MALIGNANT MELANOMA [None]
  - NEPHROCALCINOSIS [None]
  - NEPHROPATHY [None]
